FAERS Safety Report 4545461-2 (Version None)
Quarter: 2005Q1

REPORT INFORMATION
  Report Type: 
  Country: None (occurrence: None)
  Receive Date: 20050103
  Receipt Date: 20041216
  Transmission Date: 20050727
  Serious: Yes (Other)
  Sender: FDA-Public Use
  Company Number: 2004114806

PATIENT
  Age: 56 Year
  Sex: Female

DRUGS (6)
  1. LIPITOR [Suspect]
     Indication: ILL-DEFINED DISORDER
     Dosage: 20 MG ( 1 IN 1 D)
  2. HYDROCHLOROTHIAZIDE (HYDROCHLORTHIAZIDE) [Concomitant]
  3. CALCIUM CHANNELD BLOCKERS (CALCIUM CHANNEL BLOCKERS) [Concomitant]
  4. ACE INHBITOR NOS (ACE INHIBITOR NOS) [Concomitant]
  5. ANGIOTENSIN II ANTAGONISTS (ANGIOTENSIN II ANTAGONISTS) [Concomitant]
  6. ORAL ANTIDIABETICS (ORAL ANTIDIABETICS) [Concomitant]

REACTIONS (2)
  - DIASTOLIC DYSFUNCTION [None]
  - MYALGIA [None]
